FAERS Safety Report 7490677-9 (Version None)
Quarter: 2011Q2

REPORT INFORMATION
  Report Type: 
  Country: None (occurrence: None)
  Receive Date: 20110519
  Receipt Date: 20101201
  Transmission Date: 20111010
  Serious: Yes (Hospitalization, Other)
  Sender: FDA-Public Use
  Company Number: US-BAYER-201011115NA

PATIENT
  Age: 20 Year
  Sex: Female
  Weight: 59 kg

DRUGS (8)
  1. MOTRIN [Concomitant]
  2. YASMIN [Suspect]
     Indication: CONTRACEPTION
     Route: 048
     Dates: start: 20050101, end: 20080615
  3. YASMIN [Suspect]
     Indication: PREMENSTRUAL SYNDROME
  4. EXCEDRIN IB [Concomitant]
  5. AZITHROMYCIN [Concomitant]
     Indication: PHARYNGITIS STREPTOCOCCAL
  6. YASMIN [Suspect]
     Indication: DEPRESSION
  7. EXCEDRIN NOS [Concomitant]
  8. VITAMIN C [Concomitant]

REACTIONS (5)
  - ABDOMINAL PAIN UPPER [None]
  - VOMITING [None]
  - CHOLECYSTITIS CHRONIC [None]
  - PANCREATITIS [None]
  - CHOLELITHIASIS [None]
